FAERS Safety Report 5064912-0 (Version None)
Quarter: 2006Q3

REPORT INFORMATION
  Report Type: 
  Country: None (occurrence: None)
  Receive Date: 20060726
  Receipt Date: 20060710
  Transmission Date: 20061208
  Serious: Yes (Life-Threatening, Hospitalization)
  Sender: FDA-Public Use
  Company Number: 227828

PATIENT
  Age: 62 Year
  Sex: Female
  Weight: 40.9 kg

DRUGS (3)
  1. AVASTIN [Suspect]
     Indication: COLORECTAL CANCER METASTATIC
     Dosage: 320 MG, INTRAVENOUS
     Route: 042
     Dates: start: 20060511
  2. CAPECITABINE (CAPECITABINE) [Suspect]
     Indication: COLORECTAL CANCER METASTATIC
     Dosage: 500 MG, TID, ORAL
     Route: 048
     Dates: start: 20060511
  3. OXALIPLATIN (OXALIPLATIN) [Suspect]
     Indication: COLORECTAL CANCER METASTATIC
     Dosage: 150 MG, INTRAVENOUS
     Route: 042
     Dates: start: 20060511

REACTIONS (3)
  - HEPATIC FAILURE [None]
  - HEPATITIS [None]
  - NEOPLASM PROGRESSION [None]
